FAERS Safety Report 22282003 (Version 1)
Quarter: 2023Q2

REPORT INFORMATION
  Report Type: Spontaneous
  Country: FI (occurrence: None)
  Receive Date: 20230504
  Receipt Date: 20230504
  Transmission Date: 20230722
  Serious: Yes (Other)
  Sender: FDA-Public Use
  Company Number: FI-ROCHE-3341190

PATIENT
  Age: 79 Year
  Sex: Female

DRUGS (2)
  1. VABYSMO [Suspect]
     Active Substance: FARICIMAB-SVOA
     Indication: Neovascular age-related macular degeneration
     Route: 065
     Dates: start: 20230321
  2. VABYSMO [Suspect]
     Active Substance: FARICIMAB-SVOA
     Route: 065
     Dates: start: 20230426

REACTIONS (4)
  - Uveitis [Recovered/Resolved]
  - Corneal erosion [Unknown]
  - Corneal decompensation [Unknown]
  - Pain [Unknown]

NARRATIVE: CASE EVENT DATE: 20230403
